FAERS Safety Report 6837889-2 (Version None)
Quarter: 2010Q3

REPORT INFORMATION
  Report Type: 
  Country: None (occurrence: None)
  Receive Date: 20100713
  Receipt Date: 20070525
  Transmission Date: 20110219
  Serious: No
  Sender: FDA-Public Use
  Company Number: US-PFIZER INC-2007043350

PATIENT
  Sex: Female
  Weight: 71.7 kg

DRUGS (5)
  1. CHANTIX [Suspect]
     Indication: SMOKING CESSATION THERAPY
     Route: 048
     Dates: start: 20070516
  2. MAXZIDE [Concomitant]
  3. SYNTHROID [Concomitant]
  4. PRILOSEC [Concomitant]
  5. COZAAR [Concomitant]

REACTIONS (2)
  - NAUSEA [None]
  - SOMNOLENCE [None]
